FAERS Safety Report 24167632 (Version 3)
Quarter: 2025Q1

REPORT INFORMATION
  Report Type: Spontaneous
  Country: US (occurrence: US)
  Receive Date: 20240802
  Receipt Date: 20250117
  Transmission Date: 20250409
  Serious: No
  Sender: CALLIDITAS THERAPEUTICS AB
  Company Number: US-Calliditas-2024CAL01309

PATIENT
  Age: 47 Year
  Sex: Male
  Weight: 70 kg

DRUGS (8)
  1. TARPEYO [Suspect]
     Active Substance: BUDESONIDE
     Indication: Nephrotic syndrome
     Route: 048
     Dates: start: 20240517
  2. AMLODIPINE [Concomitant]
     Active Substance: AMLODIPINE BESYLATE
  3. ATORVASTATIN [Concomitant]
     Active Substance: ATORVASTATIN
  4. FISH OIL [Concomitant]
     Active Substance: FISH OIL
  5. JARDIANCE [Concomitant]
     Active Substance: EMPAGLIFLOZIN
  6. LOSARTAN [Concomitant]
     Active Substance: LOSARTAN
  7. VITAMIN B12 [Concomitant]
     Active Substance: CYANOCOBALAMIN
  8. VITAMIN D3 [Concomitant]
     Active Substance: CHOLECALCIFEROL

REACTIONS (8)
  - Abdominal discomfort [Unknown]
  - Product residue present [Unknown]
  - Fatigue [Not Recovered/Not Resolved]
  - Acne [Unknown]
  - Off label use [Unknown]
  - Blood glucose increased [Unknown]
  - Product dose omission issue [Recovered/Resolved]
  - Weight decreased [Unknown]
